FAERS Safety Report 14163121 (Version 4)
Quarter: 2018Q3

REPORT INFORMATION
  Report Type: Spontaneous
  Country: HR (occurrence: HR)
  Receive Date: 20171106
  Receipt Date: 20180725
  Transmission Date: 20181010
  Serious: Yes (Hospitalization)
  Sender: FDA-Public Use
  Company Number: HR-SA-2017SA210131

PATIENT
  Age: 50 Year
  Sex: Female

DRUGS (5)
  1. INFLIXIMAB [Suspect]
     Active Substance: INFLIXIMAB
     Indication: RHEUMATOID ARTHRITIS
     Dosage: 200 MG,QD
     Route: 042
     Dates: start: 20151101, end: 20170727
  2. BYOL COR [Concomitant]
     Active Substance: BISOPROLOL FUMARATE
     Dosage: 1.25 MG,UNK
     Route: 048
  3. ARAVA [Suspect]
     Active Substance: LEFLUNOMIDE
     Indication: RHEUMATOID ARTHRITIS
     Dosage: 20 MG,QD
     Route: 048
     Dates: start: 20141001, end: 20170824
  4. IBUPROFEN. [Concomitant]
     Active Substance: IBUPROFEN
     Dosage: UNK UNK,UNK
     Route: 048
  5. TRITACE [Concomitant]
     Active Substance: RAMIPRIL
     Dosage: 1.25 MG,UNK
     Route: 048

REACTIONS (5)
  - Skin exfoliation [Recovering/Resolving]
  - Rash [Recovering/Resolving]
  - Rash pustular [Recovering/Resolving]
  - Pustular psoriasis [Recovering/Resolving]
  - Dermatitis [Recovering/Resolving]

NARRATIVE: CASE EVENT DATE: 20170720
